FAERS Safety Report 5644149-4 (Version None)
Quarter: 2008Q1

REPORT INFORMATION
  Report Type: 
  Country: None (occurrence: None)
  Receive Date: 20080227
  Receipt Date: 20080211
  Transmission Date: 20080703
  Serious: Yes (Other)
  Sender: FDA-Public Use
  Company Number: 2008S1001075

PATIENT
  Age: 21 Year
  Sex: Female

DRUGS (3)
  1. AMNESTEEM [Suspect]
     Dosage: 40 MG; DAILY; ORAL, 40 MG; DAILY; ORAL, 40 MG; DAILY; ORAL
     Route: 048
     Dates: start: 20070108, end: 20070401
  2. AMNESTEEM [Suspect]
     Dosage: 40 MG; DAILY; ORAL, 40 MG; DAILY; ORAL, 40 MG; DAILY; ORAL
     Route: 048
     Dates: start: 20070601, end: 20070801
  3. AMNESTEEM [Suspect]
     Dosage: 40 MG; DAILY; ORAL, 40 MG; DAILY; ORAL, 40 MG; DAILY; ORAL
     Route: 048
     Dates: start: 20071001, end: 20071230

REACTIONS (2)
  - DRUG EXPOSURE DURING PREGNANCY [None]
  - PREGNANCY ON CONTRACEPTIVE [None]
